FAERS Safety Report 9576905 (Version 1)
Quarter: 2013Q4

REPORT INFORMATION
  Report Type: Spontaneous
  Country: US (occurrence: US)
  Receive Date: 20131001
  Receipt Date: 20131001
  Transmission Date: 20140711
  Serious: No
  Sender: FDA-Public Use
  Company Number: US-AMGEN-USASP2013005107

PATIENT
  Age: 60 Year
  Sex: Female
  Weight: 82.99 kg

DRUGS (9)
  1. ENBREL [Suspect]
     Indication: PRODUCT USED FOR UNKNOWN INDICATION
     Dosage: 50 MG, 2 TIMES/WK
     Route: 058
  2. LASIX                              /00032601/ [Concomitant]
     Dosage: 20 MG, UNK
  3. METHOTREXATE [Concomitant]
     Dosage: 2.5 MG, UNK
  4. VITAMIN D3 [Concomitant]
     Dosage: 5000 UNIT, UNK
  5. VITAMIN C                          /00008001/ [Concomitant]
     Dosage: 500 MG, UNK
  6. CALCIUM [Concomitant]
     Dosage: 500 UNK, UNK
  7. LYSINE [Concomitant]
     Dosage: 500 MG, UNK
  8. FISH OIL [Concomitant]
     Dosage: UNK
  9. ASPIRIN LOW [Concomitant]
     Dosage: 81 MG EC, UNK

REACTIONS (4)
  - Gingival pain [Unknown]
  - Injection site pain [Unknown]
  - Injection site bruising [Unknown]
  - Injection site reaction [Unknown]
